FAERS Safety Report 8821827 (Version 1)
Quarter: 2012Q4

REPORT INFORMATION
  Report Type: 
  Country: GB (occurrence: GB)
  Receive Date: 20121002
  Receipt Date: 20121002
  Transmission Date: 20130627
  Serious: Yes (Other)
  Sender: FDA-Public Use
  Company Number: GB-MYLANLABS-2012S1019757

PATIENT
  Sex: Male

DRUGS (1)
  1. BISOPROLOL [Suspect]
     Indication: BLOOD PRESSURE MANAGEMENT
     Route: 048
     Dates: start: 201202

REACTIONS (5)
  - Peripheral coldness [Unknown]
  - Heart rate decreased [Unknown]
  - Atrioventricular block [Unknown]
  - Heart rate increased [Unknown]
  - Sleep terror [Unknown]
